FAERS Safety Report 9674529 (Version 1)
Quarter: 2013Q4

REPORT INFORMATION
  Report Type: Spontaneous
  Country: IT (occurrence: IT)
  Receive Date: 20131107
  Receipt Date: 20131107
  Transmission Date: 20140711
  Serious: Yes (Death)
  Sender: FDA-Public Use
  Company Number: IT-ROCHE-1299445

PATIENT
  Age: 38 Year
  Sex: Female
  Weight: 70 kg

DRUGS (7)
  1. TORADOL [Suspect]
     Indication: ABDOMINAL PAIN
     Dosage: DOSE: 10MG/ML, FREQ: 1X
     Route: 042
     Dates: start: 20131003, end: 20131003
  2. PROPOFOL [Suspect]
     Indication: ABORTION INDUCED
     Dosage: FREQ: 1X
     Route: 042
     Dates: start: 20131003, end: 20131003
  3. GEMEPROST [Suspect]
     Indication: ABORTION INDUCED
     Dosage: DRUG NAME: REPORTED AS CERVIDIL, FREQ: 1X
     Route: 067
     Dates: start: 20131003, end: 20131003
  4. FENTANYL [Suspect]
     Indication: ABORTION INDUCED
     Dosage: FREQ: 1X
     Route: 042
     Dates: start: 20131003, end: 20131003
  5. PLASIL [Suspect]
     Indication: NAUSEA
     Dosage: FREQ: 1X
     Route: 042
     Dates: start: 20131003, end: 20131003
  6. ZANTAC [Suspect]
     Indication: NAUSEA
     Dosage: FREQ: 1X
     Route: 042
     Dates: start: 20131003, end: 20131003
  7. PARACETAMOL [Concomitant]
     Route: 065
     Dates: start: 20131003, end: 20131003

REACTIONS (1)
  - Cardio-respiratory arrest [Fatal]
